FAERS Safety Report 18107706 (Version 1)
Quarter: 2020Q3

REPORT INFORMATION
  Report Type: Spontaneous
  Country: BE (occurrence: BE)
  Receive Date: 20200804
  Receipt Date: 20200804
  Transmission Date: 20201103
  Serious: Yes (Other)
  Sender: FDA-Public Use
  Company Number: BE-PFIZER INC-2020290540

PATIENT
  Age: 72 Year
  Sex: Female

DRUGS (19)
  1. IBRANCE [Suspect]
     Active Substance: PALBOCICLIB
     Indication: BREAST CANCER METASTATIC
     Dosage: UNK
  2. CYCLOPHOSPHAMIDE. [Suspect]
     Active Substance: CYCLOPHOSPHAMIDE
     Indication: BREAST NEOPLASM
     Dosage: UNK
     Dates: start: 2006
  3. ARIMIDEX [Suspect]
     Active Substance: ANASTROZOLE
     Indication: BREAST NEOPLASM
     Dosage: UNK
     Dates: start: 2006
  4. HERCEPTIN [Suspect]
     Active Substance: TRASTUZUMAB
     Indication: BREAST NEOPLASM
     Dosage: UNK
     Dates: start: 201806
  5. HERCEPTIN [Suspect]
     Active Substance: TRASTUZUMAB
     Dosage: UNK
     Dates: start: 201910
  6. LAPATINIB [Suspect]
     Active Substance: LAPATINIB
     Indication: BREAST NEOPLASM
     Dosage: UNK
     Dates: start: 201910
  7. TAXOTERE [Suspect]
     Active Substance: DOCETAXEL
     Indication: BREAST NEOPLASM
     Dosage: UNK
     Dates: start: 2006
  8. CAPECITABINE. [Suspect]
     Active Substance: CAPECITABINE
     Indication: BREAST NEOPLASM
     Dosage: UNK
     Dates: start: 201907
  9. FASLODEX [Suspect]
     Active Substance: FULVESTRANT
     Indication: BREAST CANCER METASTATIC
     Dosage: UNK
  10. HERCEPTIN [Suspect]
     Active Substance: TRASTUZUMAB
     Indication: BREAST CANCER METASTATIC
     Dosage: UNK
     Route: 065
     Dates: start: 2006
  11. 5 FLUOROURACIL [FLUOROURACIL] [Suspect]
     Active Substance: FLUOROURACIL
     Indication: BREAST NEOPLASM
     Dosage: UNK
     Dates: start: 2006
  12. FEMARA [Suspect]
     Active Substance: LETROZOLE
     Indication: BREAST NEOPLASM
     Dosage: UNK
     Dates: start: 201910
  13. FEMARA [Suspect]
     Active Substance: LETROZOLE
     Indication: BREAST CANCER METASTATIC
  14. TRASTUZUMAB EMTANSINE [Suspect]
     Active Substance: ADO-TRASTUZUMAB EMTANSINE
     Indication: BREAST NEOPLASM
     Dosage: UNK
     Dates: start: 201905
  15. TAMOXIFEN [Suspect]
     Active Substance: TAMOXIFEN
     Indication: BREAST NEOPLASM
     Dosage: UNK
     Dates: start: 2006
  16. PACLITAXEL. [Suspect]
     Active Substance: PACLITAXEL
     Indication: BREAST NEOPLASM
     Dosage: UNK
     Dates: start: 201806
  17. EPIRUBICIN HCL [Suspect]
     Active Substance: EPIRUBICIN HYDROCHLORIDE
     Indication: BREAST NEOPLASM
     Dosage: UNK
     Dates: start: 2006
  18. HERCEPTIN [Suspect]
     Active Substance: TRASTUZUMAB
     Dosage: UNK
     Dates: start: 201907
  19. PERTUZUMAB. [Suspect]
     Active Substance: PERTUZUMAB
     Indication: BREAST NEOPLASM
     Dosage: UNK
     Dates: start: 201806

REACTIONS (1)
  - Gastrointestinal toxicity [Unknown]
